FAERS Safety Report 9880001 (Version 1)
Quarter: 2014Q1

REPORT INFORMATION
  Report Type: Spontaneous
  Country: US (occurrence: US)
  Receive Date: 20140207
  Receipt Date: 20140207
  Transmission Date: 20141002
  Serious: Yes (Hospitalization)
  Sender: FDA-Public Use
  Company Number: US-AMGEN-USASP2014008338

PATIENT
  Age: 62 Year
  Sex: Female
  Weight: 52.15 kg

DRUGS (9)
  1. ENBREL [Suspect]
     Indication: PRODUCT USED FOR UNKNOWN INDICATION
     Dosage: 50 MG, QWK
     Route: 058
  2. COREG [Concomitant]
     Dosage: 25 MG, UNK
  3. LASIX                              /00032601/ [Concomitant]
     Dosage: 40 MG, UNK
  4. PREDNISONE [Concomitant]
     Dosage: 5 MG, UNK
  5. GEMFIBROZIL [Concomitant]
     Dosage: 600 MG, UNK
  6. GABAPENTIN [Concomitant]
     Dosage: 100 MG, UNK
  7. SIMVASTATIN [Concomitant]
     Dosage: 80 MG, UNK
  8. DOXEPIN HCL [Concomitant]
     Dosage: 25 MG, UNK
  9. VASOTEC                            /00574902/ [Concomitant]
     Dosage: 20 MG, UNK

REACTIONS (2)
  - Weight decreased [Unknown]
  - Decreased appetite [Unknown]
